FAERS Safety Report 4394843-0 (Version None)
Quarter: 2004Q3

REPORT INFORMATION
  Report Type: 
  Country: None (occurrence: None)
  Receive Date: 20040707
  Receipt Date: 20040624
  Transmission Date: 20050211
  Serious: Yes (Other)
  Sender: FDA-Public Use
  Company Number: ZANA001321

PATIENT
  Age: 37 Year
  Sex: Female
  Weight: 55 kg

DRUGS (5)
  1. TIZANIDINE HCL [Suspect]
     Indication: LIGAMENT SPRAIN
     Dosage: 2 DF/D; ORAL
     Route: 048
     Dates: start: 20040609
  2. BROMAZEPAM [Concomitant]
  3. CIPRAMIL (CITALOPRAM HYDROBROMIDE) [Concomitant]
  4. OMEPRAZLE [Concomitant]
  5. CIPRAMIL (CITALOPRAM HYDROBROMIDE) [Concomitant]

REACTIONS (7)
  - AMNESIA [None]
  - CRYING [None]
  - FEELING COLD [None]
  - LETHARGY [None]
  - SEDATION [None]
  - SELF-MEDICATION [None]
  - SOMNOLENCE [None]
